FAERS Safety Report 13852468 (Version 1)
Quarter: 2017Q3

REPORT INFORMATION
  Report Type: Spontaneous
  Country: US (occurrence: US)
  Receive Date: 20170809
  Receipt Date: 20170809
  Transmission Date: 20171127
  Serious: No
  Sender: FDA-Public Use
  Company Number: US-ROCHE-640283

PATIENT
  Age: 52 Year
  Sex: Female

DRUGS (1)
  1. BONIVA [Suspect]
     Active Substance: IBANDRONATE SODIUM
     Indication: BONE DENSITY DECREASED
     Route: 065

REACTIONS (10)
  - Hypoaesthesia [Unknown]
  - Pelvic pain [Unknown]
  - Abdominal distension [Unknown]
  - Gastrointestinal sounds abnormal [Not Recovered/Not Resolved]
  - Abdominal pain upper [Unknown]
  - Palpitations [Unknown]
  - Chest pain [Unknown]
  - Flatulence [Unknown]
  - Muscle spasms [Unknown]
  - Headache [Unknown]
